FAERS Safety Report 19382653 (Version 1)
Quarter: 2021Q2

REPORT INFORMATION
  Report Type: Report from Study
  Country: IT (occurrence: IT)
  Receive Date: 20210607
  Receipt Date: 20210607
  Transmission Date: 20210717
  Serious: Yes (Hospitalization)
  Sender: FDA-Public Use
  Company Number: IT-DSJP-DSE-2021-116425

PATIENT
  Age: 81 Year
  Sex: Male

DRUGS (5)
  1. DELTACORTENE [Concomitant]
     Active Substance: PREDNISONE
     Indication: RHEUMATOID ARTHRITIS
     Dosage: UNK
  2. AMIODARONE [Concomitant]
     Active Substance: AMIODARONE
     Indication: ARRHYTHMIA
     Dosage: UNK
  3. FLECAINIDE [Concomitant]
     Active Substance: FLECAINIDE
     Indication: ARRHYTHMIA
     Dosage: UNK
  4. VACCINES [Suspect]
     Active Substance: UNSPECIFIED INGREDIENT
     Indication: COVID-19 IMMUNISATION
     Dosage: 0.5 ML, TOTAL
     Route: 030
     Dates: start: 20210329, end: 20210329
  5. LIXIANA [Suspect]
     Active Substance: EDOXABAN TOSYLATE
     Indication: ATRIAL FIBRILLATION
     Dosage: 30 MG, QD
     Route: 048
     Dates: end: 20210505

REACTIONS (5)
  - Anaemia [Recovering/Resolving]
  - Melaena [Recovering/Resolving]
  - Abdominal wall haematoma [Recovering/Resolving]
  - Pruritus [Recovering/Resolving]
  - Erythema [Recovering/Resolving]

NARRATIVE: CASE EVENT DATE: 20210405
